FAERS Safety Report 8480882-7 (Version None)
Quarter: 2012Q3

REPORT INFORMATION
  Report Type: 
  Country: None (occurrence: None)
  Receive Date: 20120702
  Receipt Date: 20120619
  Transmission Date: 20120928
  Serious: Yes (Other)
  Sender: FDA-Public Use
  Company Number: JP-VERTEX PHARMACEUTICALS INC.-AE-2012-008527

PATIENT
  Age: 74 Year
  Sex: Male

DRUGS (9)
  1. RIBAVIRIN [Concomitant]
     Route: 048
     Dates: start: 20120606, end: 20120608
  2. PHENOBARBITAL TAB [Concomitant]
     Route: 048
     Dates: end: 20120608
  3. ISOMYTAL [Concomitant]
     Route: 048
  4. RIBAVIRIN [Concomitant]
     Route: 048
     Dates: start: 20120529, end: 20120605
  5. PEG-INTRON [Concomitant]
     Indication: HEPATITIS C
     Route: 058
     Dates: start: 20120529, end: 20120605
  6. TRIAZOLAM [Concomitant]
     Route: 048
  7. TELAVIC (TELAPREVIR) [Suspect]
     Indication: HEPATITIS C
     Route: 048
     Dates: start: 20120529, end: 20120608
  8. BROVARIN [Concomitant]
     Route: 048
  9. LEVOTOMIN [Concomitant]
     Route: 048

REACTIONS (4)
  - DIZZINESS [None]
  - RESTLESSNESS [None]
  - NEUTROPHIL COUNT DECREASED [None]
  - HEPATIC ENCEPHALOPATHY [None]
